FAERS Safety Report 20119124 (Version 1)
Quarter: 2021Q4

REPORT INFORMATION
  Report Type: Spontaneous
  Country: US (occurrence: None)
  Receive Date: 20211125
  Receipt Date: 20211125
  Transmission Date: 20220303
  Serious: Yes (Hospitalization)
  Sender: FDA-Public Use
  Company Number: None

PATIENT
  Sex: Female

DRUGS (3)
  1. COPAXONE [Suspect]
     Active Substance: GLATIRAMER ACETATE
     Indication: Multiple sclerosis
     Dosage: OTHER FREQUENCY : 3X A WEEK;?
     Route: 058
     Dates: start: 20150701
  2. HYDROCODOONE [Concomitant]
  3. PROZAC [Concomitant]
     Active Substance: FLUOXETINE HYDROCHLORIDE

REACTIONS (3)
  - Multiple sclerosis relapse [None]
  - Pneumonia [None]
  - Clostridium difficile infection [None]
